FAERS Safety Report 14366537 (Version 1)
Quarter: 2018Q1

REPORT INFORMATION
  Report Type: Spontaneous
  Country: US (occurrence: US)
  Receive Date: 20180108
  Receipt Date: 20180108
  Transmission Date: 20180509
  Serious: No
  Sender: FDA-Public Use
  Company Number: None

PATIENT
  Age: 63 Year
  Sex: Female

DRUGS (1)
  1. AFINITOR [Suspect]
     Active Substance: EVEROLIMUS
     Indication: BREAST CANCER IN SITU
     Route: 048
     Dates: start: 20170915

REACTIONS (3)
  - Throat irritation [None]
  - Rash [None]
  - Peripheral swelling [None]

NARRATIVE: CASE EVENT DATE: 20171222
